FAERS Safety Report 11008250 (Version 2)
Quarter: 2015Q2

REPORT INFORMATION
  Report Type: Spontaneous
  Country: US (occurrence: US)
  Receive Date: 20150410
  Receipt Date: 20150420
  Transmission Date: 20150821
  Serious: Yes (Death, Hospitalization, Other)
  Sender: FDA-Public Use
  Company Number: US-DENDREON CORPORATION-2015PROUSA04398

PATIENT
  Age: 64 Year
  Sex: Male
  Weight: 74.8 kg

DRUGS (2)
  1. PROVENGE [Suspect]
     Active Substance: SIPULEUCEL-T
     Dosage: 250 ML, SINGLE
     Route: 042
     Dates: start: 20150326, end: 20150326
  2. PROVENGE [Suspect]
     Active Substance: SIPULEUCEL-T
     Indication: PROSTATE CANCER METASTATIC
     Dosage: 250 ML, SINGLE
     Route: 042
     Dates: start: 20150305, end: 20150305

REACTIONS (21)
  - Multi-organ failure [Unknown]
  - Acute kidney injury [Unknown]
  - Fibrin D dimer increased [Unknown]
  - Intestinal obstruction [Unknown]
  - Pulmonary embolism [Unknown]
  - Dyspnoea [Unknown]
  - Oedema peripheral [Unknown]
  - Death [Fatal]
  - Transaminases increased [Unknown]
  - Hypotension [Unknown]
  - Abdominal distension [Unknown]
  - Cachexia [Unknown]
  - Septic shock [Unknown]
  - Hypoxia [Unknown]
  - Abdominal pain [Unknown]
  - Metabolic acidosis [Unknown]
  - Mental status changes [Unknown]
  - Dehydration [Unknown]
  - Pneumonia [Unknown]
  - Atrial fibrillation [Unknown]
  - Thrombocytopenia [Unknown]

NARRATIVE: CASE EVENT DATE: 20150328
